FAERS Safety Report 8611749 (Version 3)
Quarter: 2015Q4

REPORT INFORMATION
  Report Type: Spontaneous
  Country: US (occurrence: US)
  Receive Date: 20120613
  Receipt Date: 20151228
  Transmission Date: 20160305
  Serious: Yes (Death, Hospitalization)
  Sender: FDA-Public Use
  Company Number: US-SANOFI-AVENTIS-2012SA041857

PATIENT
  Age: 68 Year
  Sex: Male

DRUGS (9)
  1. LORTAB [Concomitant]
     Active Substance: ACETAMINOPHEN\HYDROCODONE BITARTRATE
  2. PRILOSEC [Concomitant]
     Active Substance: OMEPRAZOLE MAGNESIUM
  3. LIPITOR [Concomitant]
     Active Substance: ATORVASTATIN CALCIUM
  4. XANAX [Concomitant]
     Active Substance: ALPRAZOLAM
  5. ASPIRIN. [Concomitant]
     Active Substance: ASPIRIN
  6. SOMA [Concomitant]
     Active Substance: CARISOPRODOL
  7. TOPROL XL [Concomitant]
     Active Substance: METOPROLOL SUCCINATE
  8. NEURONTIN [Concomitant]
     Active Substance: GABAPENTIN
  9. PLAVIX [Suspect]
     Active Substance: CLOPIDOGREL BISULFATE
     Route: 048
     Dates: start: 20090113, end: 20100216

REACTIONS (2)
  - Internal haemorrhage [Fatal]
  - Haemorrhagic stroke [Fatal]
